FAERS Safety Report 11405294 (Version 1)
Quarter: 2015Q3

REPORT INFORMATION
  Report Type: Spontaneous
  Country: AR (occurrence: AR)
  Receive Date: 20150821
  Receipt Date: 20150821
  Transmission Date: 20151125
  Serious: Yes (Other)
  Sender: FDA-Public Use
  Company Number: AR-PFIZER INC-2015273843

PATIENT
  Age: 56 Year
  Sex: Male

DRUGS (3)
  1. ATORVASTATINA [Concomitant]
     Active Substance: ATORVASTATIN
     Indication: DYSLIPIDAEMIA
  2. AXITINIB [Suspect]
     Active Substance: AXITINIB
     Indication: METASTATIC RENAL CELL CARCINOMA
     Dosage: 5 MG, 2X/DAY
     Dates: start: 201407
  3. AXITINIB [Suspect]
     Active Substance: AXITINIB
     Dosage: 7 MG, 2X/DAY
     Dates: start: 2014

REACTIONS (8)
  - Pleural effusion [Unknown]
  - Hypertension [Unknown]
  - Metastatic renal cell carcinoma [Unknown]
  - Diarrhoea [Unknown]
  - Hypothyroidism [Unknown]
  - Transaminases increased [Unknown]
  - Dyspnoea [Unknown]
  - Disease progression [Unknown]

NARRATIVE: CASE EVENT DATE: 201503
